FAERS Safety Report 15888645 (Version 1)
Quarter: 2019Q1

REPORT INFORMATION
  Report Type: Spontaneous
  Country: US (occurrence: US)
  Receive Date: 20190129
  Receipt Date: 20190129
  Transmission Date: 20190417
  Serious: Yes (Other)
  Sender: FDA-Public Use
  Company Number: None

PATIENT

DRUGS (1)
  1. CATHFLO ACTIVASE [Suspect]
     Active Substance: ALTEPLASE
     Indication: CATHETER MANAGEMENT
     Route: 042
     Dates: start: 20181211, end: 20190111

REACTIONS (6)
  - Hypotension [None]
  - Hyperhidrosis [None]
  - Vomiting [None]
  - Dizziness [None]
  - Nausea [None]
  - Tachycardia [None]

NARRATIVE: CASE EVENT DATE: 20181211
